FAERS Safety Report 8050734-5 (Version None)
Quarter: 2012Q1

REPORT INFORMATION
  Report Type: 
  Country: None (occurrence: None)
  Receive Date: 20120117
  Receipt Date: 20120117
  Transmission Date: 20120608
  Serious: Yes (Other)
  Sender: FDA-Public Use
  Company Number: None

PATIENT
  Age: 56 Year
  Sex: Female
  Weight: 49.895 kg

DRUGS (1)
  1. AMLODIPINE [Suspect]
     Indication: HYPERTENSION
     Dosage: 10 MG
     Route: 048
     Dates: start: 20070901, end: 20100205

REACTIONS (7)
  - PARAESTHESIA [None]
  - HYPOAESTHESIA [None]
  - MUSCLE TIGHTNESS [None]
  - FEELING OF BODY TEMPERATURE CHANGE [None]
  - ARTHRALGIA [None]
  - MUSCULOSKELETAL PAIN [None]
  - TREMOR [None]
